FAERS Safety Report 6735109-0 (Version None)
Quarter: 2010Q2

REPORT INFORMATION
  Report Type: 
  Country: None (occurrence: None)
  Receive Date: 20100521
  Receipt Date: 20100511
  Transmission Date: 20101027
  Serious: Yes (Other)
  Sender: FDA-Public Use
  Company Number: CA-JNJFOC-20100505257

PATIENT
  Sex: Female
  Weight: 49 kg

DRUGS (10)
  1. REMICADE [Suspect]
     Indication: COLITIS ULCERATIVE
     Dosage: 15 INFUSIONS
     Route: 042
  2. REMICADE [Suspect]
     Dosage: 15 INFUSIONS
     Route: 042
  3. CALCIUM [Concomitant]
  4. VITAMIN D [Concomitant]
  5. IRON [Concomitant]
  6. BIRTH CONTROL PILL [Concomitant]
  7. RIFAMPIN [Concomitant]
     Indication: PRURITUS
  8. SOLU-CORTEF [Concomitant]
     Indication: PREMEDICATION
  9. BENADRYL [Concomitant]
     Indication: PREMEDICATION
  10. M-M-R II [Concomitant]
     Route: 050

REACTIONS (5)
  - CHOLANGITIS SCLEROSING [None]
  - INFUSION RELATED REACTION [None]
  - PROCEDURAL PAIN [None]
  - PRURITUS [None]
  - STENT PLACEMENT [None]
